FAERS Safety Report 5950114-X (Version None)
Quarter: 2008Q4

REPORT INFORMATION
  Report Type: 
  Country: None (occurrence: None)
  Receive Date: 20081112
  Receipt Date: 20081015
  Transmission Date: 20090506
  Serious: Yes (Death)
  Sender: FDA-Public Use
  Company Number: JP-ROCHE-594139

PATIENT
  Age: 61 Year
  Sex: Male

DRUGS (3)
  1. ROCEPHIN [Suspect]
     Indication: MENINGITIS BACTERIAL
     Route: 042
  2. VANCOMYCIN [Suspect]
     Indication: MENINGITIS BACTERIAL
     Route: 065
  3. DEXAMETHASONE 0.5MG TAB [Suspect]
     Indication: MENINGITIS BACTERIAL
     Route: 048

REACTIONS (2)
  - ISCHAEMIA [None]
  - VASCULITIS [None]
